FAERS Safety Report 5679017-5 (Version None)
Quarter: 2008Q1

REPORT INFORMATION
  Report Type: 
  Country: None (occurrence: None)
  Receive Date: 20080321
  Receipt Date: 20080311
  Transmission Date: 20080703
  Serious: Yes (Hospitalization, Disabling, Other)
  Sender: FDA-Public Use
  Company Number: 07-001014

PATIENT
  Age: 21 Year
  Sex: Female
  Weight: 67.1 kg

DRUGS (1)
  1. OVCON-35 [Suspect]
     Indication: OVARIAN CYST
     Dosage: 35/400 UG QD, ORAL
     Route: 048
     Dates: start: 20050602, end: 20050914

REACTIONS (16)
  - ALEXIA [None]
  - ANTINUCLEAR ANTIBODY POSITIVE [None]
  - ANTIPHOSPHOLIPID SYNDROME [None]
  - AORTIC VALVE INCOMPETENCE [None]
  - APHASIA [None]
  - BLOOD PRESSURE INCREASED [None]
  - CEREBROVASCULAR ACCIDENT [None]
  - CONVULSION [None]
  - ESCHERICHIA URINARY TRACT INFECTION [None]
  - HEADACHE [None]
  - METRORRHAGIA [None]
  - MIGRAINE [None]
  - MITRAL VALVE INCOMPETENCE [None]
  - NAUSEA [None]
  - PROTEIN S DEFICIENCY [None]
  - TRICUSPID VALVE INCOMPETENCE [None]
